FAERS Safety Report 9094165 (Version 1)
Quarter: 2013Q1

REPORT INFORMATION
  Report Type: Spontaneous
  Country: MX (occurrence: MX)
  Receive Date: 20130218
  Receipt Date: 20130218
  Transmission Date: 20140127
  Serious: Yes (Hospitalization)
  Sender: FDA-Public Use
  Company Number: MX-ASTRAZENECA-2013SE09361

PATIENT
  Sex: 0

DRUGS (1)
  1. XYLOCAINE [Suspect]
     Route: 042

REACTIONS (2)
  - Anaphylactic shock [Unknown]
  - Hypotension [Unknown]
